FAERS Safety Report 6760866-7 (Version None)
Quarter: 2010Q2

REPORT INFORMATION
  Report Type: 
  Country: None (occurrence: None)
  Receive Date: 20100608
  Receipt Date: 20100526
  Transmission Date: 20101027
  Serious: Yes (Other)
  Sender: FDA-Public Use
  Company Number: PHHY2010JP03703

PATIENT
  Sex: Male

DRUGS (11)
  1. DIOVAN [Suspect]
     Indication: HYPERTENSION
     Dosage: 80 MG DAILY
     Route: 048
     Dates: start: 20091118, end: 20100118
  2. ASPIRIN [Concomitant]
     Dosage: UNK
  3. ALOSITOL [Concomitant]
     Route: 048
  4. ULGUT [Concomitant]
     Indication: GASTRITIS
     Dosage: 600 MG, UNK
     Route: 048
     Dates: start: 20040728
  5. ASPIRIN [Concomitant]
     Indication: ANGINA PECTORIS
     Dosage: 100 MG, UNK
     Route: 048
     Dates: start: 20040728, end: 20100118
  6. CALBLOCK [Concomitant]
     Indication: HYPERTENSION
     Dosage: 16 MG, UNK
     Route: 048
     Dates: start: 20070730
  7. LASIX [Concomitant]
     Indication: HYPERTENSION
     Dosage: 10 MG, UNK
     Route: 048
     Dates: start: 20040728
  8. ARTIST [Concomitant]
     Indication: HYPERTENSION
     Dosage: 10 MG, UNK
     Route: 048
     Dates: start: 20040728
  9. RHYTHMY [Concomitant]
     Indication: INSOMNIA
     Dosage: 2 MG, UNK
     Route: 048
     Dates: start: 20040728
  10. CRESTOR [Concomitant]
     Indication: HYPERLIPIDAEMIA
     Dosage: 2.5 MG, UNK
     Route: 048
     Dates: start: 20090316, end: 20100118
  11. NU-LOTAN [Concomitant]
     Indication: HYPERTENSION
     Dosage: 50 MG, UNK
     Route: 048
     Dates: start: 20090316, end: 20100118

REACTIONS (2)
  - HYPOAESTHESIA [None]
  - MYELODYSPLASTIC SYNDROME [None]
